FAERS Safety Report 10519761 (Version 2)
Quarter: 2014Q4

REPORT INFORMATION
  Report Type: Spontaneous
  Country: DE (occurrence: DE)
  Receive Date: 20141015
  Receipt Date: 20141201
  Transmission Date: 20150528
  Serious: Yes (Hospitalization)
  Sender: FDA-Public Use
  Company Number: DE-BRISTOL-MYERS SQUIBB COMPANY-21466834

PATIENT
  Age: 20 Year
  Sex: Female

DRUGS (3)
  1. VITAMIN B6 [Concomitant]
     Active Substance: PYRIDOXINE HYDROCHLORIDE
  2. DEFERASIROX [Concomitant]
     Active Substance: DEFERASIROX
  3. LITALIR CAPS 500 MG [Suspect]
     Active Substance: HYDROXYUREA
     Indication: SICKLE CELL ANAEMIA
     Route: 048

REACTIONS (1)
  - Lymph node tuberculosis [Unknown]

NARRATIVE: CASE EVENT DATE: 20140906
